FAERS Safety Report 6706218-7 (Version None)
Quarter: 2010Q2

REPORT INFORMATION
  Report Type: 
  Country: None (occurrence: None)
  Receive Date: 20100503
  Receipt Date: 20100423
  Transmission Date: 20101027
  Serious: Yes (Hospitalization)
  Sender: FDA-Public Use
  Company Number: US-AMGEN-KDC408217

PATIENT
  Sex: Male
  Weight: 105 kg

DRUGS (3)
  1. PANITUMUMAB [Suspect]
     Indication: COLORECTAL CANCER
     Route: 042
     Dates: start: 20100219
  2. IRINOTECAN HYDROCHLORIDE [Suspect]
     Route: 042
     Dates: start: 20100416
  3. ERLOTINIB HYDROCHLORIDE [Suspect]
     Route: 048
     Dates: start: 20100219

REACTIONS (5)
  - DIARRHOEA [None]
  - DISEASE PROGRESSION [None]
  - FATIGUE [None]
  - NAUSEA [None]
  - NEUTROPENIA [None]
